FAERS Safety Report 8461988 (Version 20)
Quarter: 2021Q4

REPORT INFORMATION
  Report Type: Other
  Country: CA (occurrence: CA)
  Receive Date: 20120315
  Receipt Date: 20211027
  Transmission Date: 20220303
  Serious: Yes (Hospitalization, Other)
  Sender: FDA-Public Use
  Company Number: CA-ROCHE-1046861

PATIENT
  Age: 30 Year
  Sex: Female
  Weight: 90.7 kg

DRUGS (13)
  1. RITUXAN [Suspect]
     Active Substance: RITUXIMAB
     Indication: Granulomatosis with polyangiitis
     Dosage: FOR 5 TIMES?ALSO RECIEVED IN DEC/2011
     Route: 042
     Dates: start: 20101007, end: 20101201
  2. RITUXAN [Suspect]
     Active Substance: RITUXIMAB
     Dosage: ALSO RECIEVED ON 21/JUN/2011
     Route: 042
     Dates: start: 20110607, end: 20141201
  3. RITUXAN [Suspect]
     Active Substance: RITUXIMAB
     Route: 042
     Dates: start: 20120927
  4. RITUXAN [Suspect]
     Active Substance: RITUXIMAB
     Route: 042
     Dates: start: 20150601, end: 20160627
  5. RITUXAN [Suspect]
     Active Substance: RITUXIMAB
     Dosage: NO PIRS AVAILABLE, ON HOLD
     Route: 042
     Dates: start: 20170203, end: 20210309
  6. DESMOPRESSIN [Concomitant]
     Active Substance: DESMOPRESSIN
     Indication: Diabetes insipidus
  7. LORAZEPAM [Concomitant]
     Active Substance: LORAZEPAM
     Indication: Anxiety
  8. HYDROMORPHONE [Concomitant]
     Active Substance: HYDROMORPHONE
     Indication: Pain
  9. ACETAMINOPHEN [Concomitant]
     Active Substance: ACETAMINOPHEN
     Indication: Premedication
     Route: 048
     Dates: start: 20110621, end: 20110621
  10. ACETAMINOPHEN [Concomitant]
     Active Substance: ACETAMINOPHEN
     Route: 048
     Dates: start: 20101007
  11. DIPHENHYDRAMINE HYDROCHLORIDE [Concomitant]
     Active Substance: DIPHENHYDRAMINE HYDROCHLORIDE
     Route: 048
     Dates: start: 20110621, end: 20110621
  12. CORTEF [Concomitant]
     Active Substance: HYDROCORTISONE
  13. THYROID [Concomitant]
     Active Substance: LEVOTHYROXINE\LIOTHYRONINE

REACTIONS (15)
  - Blood pressure fluctuation [Unknown]
  - Laryngeal stenosis [Not Recovered/Not Resolved]
  - Tracheal disorder [Unknown]
  - Cholelithiasis [Recovered/Resolved]
  - Hepatic enzyme increased [Recovered/Resolved]
  - Biliary dilatation [Unknown]
  - Stridor [Not Recovered/Not Resolved]
  - Cough [Not Recovered/Not Resolved]
  - Blood pressure increased [Unknown]
  - Weight increased [Not Recovered/Not Resolved]
  - Body temperature increased [Unknown]
  - Disease recurrence [Unknown]
  - Hypertension [Unknown]
  - Influenza [Not Recovered/Not Resolved]
  - Nasopharyngitis [Not Recovered/Not Resolved]

NARRATIVE: CASE EVENT DATE: 20120101
